FAERS Safety Report 4673533-0 (Version None)
Quarter: 2005Q2

REPORT INFORMATION
  Report Type: 
  Country: None (occurrence: None)
  Receive Date: 20050523
  Receipt Date: 20050510
  Transmission Date: 20051028
  Serious: Yes (Hospitalization)
  Sender: FDA-Public Use
  Company Number: 200510851BWH

PATIENT
  Age: 49 Year
  Sex: Male

DRUGS (6)
  1. AVELOX [Suspect]
     Indication: PERTUSSIS
     Dosage: 400 MG, QD, ORAL
     Route: 048
     Dates: start: 20050301
  2. AVELOX [Suspect]
     Indication: PNEUMONIA
     Dosage: 400 MG, QD, ORAL
     Route: 048
     Dates: start: 20050301
  3. ALPRAZOLAM [Concomitant]
  4. Z-PAK [Concomitant]
  5. XANAX [Concomitant]
  6. SERZONE [Concomitant]

REACTIONS (3)
  - NEUROPATHY PERIPHERAL [None]
  - PAIN IN EXTREMITY [None]
  - PERONEAL NERVE PALSY [None]
